FAERS Safety Report 6877375-7 (Version None)
Quarter: 2010Q3

REPORT INFORMATION
  Report Type: 
  Country: None (occurrence: None)
  Receive Date: 20100727
  Receipt Date: 20090922
  Transmission Date: 20110219
  Serious: No
  Sender: FDA-Public Use
  Company Number: US-ABBOTT-09P-163-0599323-00

PATIENT
  Sex: Female
  Weight: 111.23 kg

DRUGS (3)
  1. SYNTHROID [Suspect]
     Indication: GOITRE
     Route: 048
     Dates: start: 20040101, end: 20080101
  2. SYNTHROID [Suspect]
     Indication: HYPOTHYROIDISM
     Route: 048
     Dates: start: 20080101, end: 20090910
  3. VITAMIN B6 [Concomitant]
     Indication: ROUTINE HEALTH MAINTENANCE

REACTIONS (2)
  - GOITRE [None]
  - ILL-DEFINED DISORDER [None]
